FAERS Safety Report 17914165 (Version 10)
Quarter: 2023Q2

REPORT INFORMATION
  Report Type: Spontaneous
  Country: IT (occurrence: IT)
  Receive Date: 20200618
  Receipt Date: 20230605
  Transmission Date: 20230721
  Serious: Yes (Other)
  Sender: FDA-Public Use
  Company Number: NVSC2020IT168907

PATIENT
  Age: 73 Year
  Sex: Male
  Weight: 114 kg

DRUGS (47)
  1. TAMSULOSIN HYDROCHLORIDE [Suspect]
     Active Substance: TAMSULOSIN HYDROCHLORIDE
     Indication: Product used for unknown indication
     Dosage: 0.4 MG
     Route: 065
  2. TAMSULOSIN HYDROCHLORIDE [Suspect]
     Active Substance: TAMSULOSIN HYDROCHLORIDE
     Dosage: UNK
     Route: 065
  3. ATENOLOL [Suspect]
     Active Substance: ATENOLOL
     Indication: Product used for unknown indication
     Dosage: 100 MG
     Route: 048
  4. LANSOPRAZOLE [Suspect]
     Active Substance: LANSOPRAZOLE
     Indication: Product used for unknown indication
     Dosage: 15 MG
     Route: 065
  5. ALLOPURINOL [Suspect]
     Active Substance: ALLOPURINOL
     Indication: Product used for unknown indication
     Dosage: 100 MG
     Route: 065
  6. ALLOPURINOL [Suspect]
     Active Substance: ALLOPURINOL
     Dosage: 100 MG
     Route: 048
  7. PERINDOPRIL [Suspect]
     Active Substance: PERINDOPRIL
     Indication: Product used for unknown indication
     Dosage: 4MG
     Route: 065
  8. PERINDOPRIL [Suspect]
     Active Substance: PERINDOPRIL
     Dosage: UNK
     Route: 065
  9. APIXABAN [Suspect]
     Active Substance: APIXABAN
     Indication: Atrial fibrillation
     Dosage: 10 MG, QD
     Route: 048
     Dates: start: 20141031, end: 20200227
  10. APIXABAN [Suspect]
     Active Substance: APIXABAN
     Indication: Cerebrovascular accident prophylaxis
     Dosage: 90 MG
     Route: 048
  11. APIXABAN [Suspect]
     Active Substance: APIXABAN
     Dosage: 84.4 MG
     Route: 048
  12. APIXABAN [Suspect]
     Active Substance: APIXABAN
     Dosage: 84.4 MG
     Route: 048
  13. APIXABAN [Suspect]
     Active Substance: APIXABAN
     Dosage: 84.4 MG
     Route: 048
  14. APIXABAN [Suspect]
     Active Substance: APIXABAN
     Dosage: 90 MG
     Route: 048
  15. ASPIRIN [Suspect]
     Active Substance: ASPIRIN
     Indication: Product used for unknown indication
     Dosage: 100MG (100 MILLIGRAM ENTERIC TABLET)
  16. ASPIRIN [Suspect]
     Active Substance: ASPIRIN
     Dosage: 100MG (100 MILLIGRAM ENTERIC TABLET)
  17. ASPIRIN [Suspect]
     Active Substance: ASPIRIN
     Dosage: 100MG (100 MG)
  18. ASPIRIN [Suspect]
     Active Substance: ASPIRIN
     Dosage: 100MG (COATED TABLET)
  19. ASPIRIN [Suspect]
     Active Substance: ASPIRIN
     Dosage: 100MG (100 MG, COATED TABLET,GASTRO-RESISTANT TABLET)
  20. PERINDOPRIL ERBUMINE [Suspect]
     Active Substance: PERINDOPRIL ERBUMINE
     Indication: Product used for unknown indication
     Dosage: 4 MG
     Route: 065
  21. PERINDOPRIL [Suspect]
     Active Substance: PERINDOPRIL
     Indication: Product used for unknown indication
     Dosage: 4 MG
     Route: 065
  22. AMLODIPINE [Suspect]
     Active Substance: AMLODIPINE BESYLATE
     Indication: Product used for unknown indication
     Dosage: UNK
     Route: 065
  23. AMLODIPINE [Suspect]
     Active Substance: AMLODIPINE BESYLATE
     Dosage: 4 MG
     Route: 065
  24. AMLODIPINE [Suspect]
     Active Substance: AMLODIPINE BESYLATE
     Dosage: 4 MG
     Route: 065
  25. AMLODIPINE BESYLATE [Suspect]
     Active Substance: AMLODIPINE BESYLATE
     Indication: Product used for unknown indication
     Dosage: 4 MG
     Route: 065
  26. AMLODIPINE BESYLATE [Suspect]
     Active Substance: AMLODIPINE BESYLATE
     Dosage: UNK
     Route: 065
  27. FUROSEMIDE [Suspect]
     Active Substance: FUROSEMIDE
     Indication: Product used for unknown indication
     Dosage: 25 MG
     Route: 048
  28. FUROSEMIDE [Suspect]
     Active Substance: FUROSEMIDE
     Dosage: UNK
     Route: 065
  29. NORVASC [Suspect]
     Active Substance: AMLODIPINE BESYLATE
     Indication: Product used for unknown indication
     Dosage: UNK
     Route: 065
  30. LASIX [Suspect]
     Active Substance: FUROSEMIDE
     Indication: Product used for unknown indication
     Dosage: 25 MG
     Route: 048
  31. ELIQUIS [Suspect]
     Active Substance: APIXABAN
     Indication: Atrial fibrillation
     Dosage: 84.4 MG
     Route: 048
  32. ELIQUIS [Suspect]
     Active Substance: APIXABAN
     Indication: Cerebrovascular accident prophylaxis
     Dosage: 90MG (90 MG)
     Route: 065
  33. ELIQUIS [Suspect]
     Active Substance: APIXABAN
     Dosage: 10 MG, QD
     Route: 048
     Dates: start: 20141031, end: 20200227
  34. ELIQUIS [Suspect]
     Active Substance: APIXABAN
     Dosage: 90MG
     Route: 065
  35. ASPIRIN [Suspect]
     Active Substance: ASPIRIN
     Indication: Product used for unknown indication
     Dosage: UNK
     Route: 065
  36. CALCITRIOL [Suspect]
     Active Substance: CALCITRIOL
     Indication: Product used for unknown indication
     Dosage: 0.25 MG
     Route: 048
  37. CALCITRIOL [Suspect]
     Active Substance: CALCITRIOL
     Dosage: 3 DF
     Route: 048
  38. ASPIRIN [Suspect]
     Active Substance: ASPIRIN
     Indication: Product used for unknown indication
     Dosage: 100 MG
     Route: 065
  39. CALCITRIOL [Suspect]
     Active Substance: CALCITRIOL
     Indication: Product used for unknown indication
     Dosage: UNK (UNK)
     Route: 048
  40. CALCITRIOL [Suspect]
     Active Substance: CALCITRIOL
     Dosage: 0.25 MG
     Route: 048
  41. CALCITRIOL [Suspect]
     Active Substance: CALCITRIOL
     Dosage: 3 DOSAGE FORM
     Route: 048
  42. CALCITRIOL [Suspect]
     Active Substance: CALCITRIOL
     Dosage: UNK (UNK)
     Route: 048
  43. CALCITRIOL [Suspect]
     Active Substance: CALCITRIOL
     Dosage: UNK (UNK)
     Route: 048
  44. ASPIRIN [Suspect]
     Active Substance: ASPIRIN
     Indication: Product used for unknown indication
     Dosage: 4 MG
     Route: 065
  45. PERINDOPRIL ERBUMINE [Suspect]
     Active Substance: PERINDOPRIL ERBUMINE
     Indication: Product used for unknown indication
     Dosage: 4 MG
     Route: 065
  46. ROCALTROL [Suspect]
     Active Substance: CALCITRIOL
     Indication: Product used for unknown indication
     Dosage: 3 DOSAGE FORM
     Route: 048
  47. ROCALTROL [Suspect]
     Active Substance: CALCITRIOL
     Dosage: 0.25 MG
     Route: 048

REACTIONS (3)
  - Haematochezia [Recovering/Resolving]
  - Prescribed overdose [Recovered/Resolved]
  - Off label use [Recovered/Resolved]

NARRATIVE: CASE EVENT DATE: 20141108
